FAERS Safety Report 4593804-6 (Version None)
Quarter: 2005Q1

REPORT INFORMATION
  Report Type: 
  Country: None (occurrence: None)
  Receive Date: 20050301
  Receipt Date: 20050218
  Transmission Date: 20050727
  Serious: Yes (Other)
  Sender: FDA-Public Use
  Company Number: 200511400US

PATIENT
  Sex: 0

DRUGS (1)
  1. TAXOTERE [Suspect]
     Dosage: DOSE: UNK

REACTIONS (1)
  - RHABDOMYOLYSIS [None]
